FAERS Safety Report 8491495-5 (Version None)
Quarter: 2012Q3

REPORT INFORMATION
  Report Type: 
  Country: None (occurrence: None)
  Receive Date: 20120706
  Receipt Date: 20120628
  Transmission Date: 20120928
  Serious: Yes (Other)
  Sender: FDA-Public Use
  Company Number: US-UCBSA-059953

PATIENT
  Age: 71 Year
  Sex: Female

DRUGS (7)
  1. LITHIUM CARBONATE [Concomitant]
     Indication: DEPRESSION
     Route: 048
     Dates: start: 20080701
  2. PAXIL [Concomitant]
     Indication: DEPRESSION
     Route: 048
     Dates: start: 20080701
  3. QUETIAPINE [Concomitant]
     Indication: DEPRESSION
     Dosage: 1/2 TAB
     Route: 048
     Dates: start: 20080701
  4. METADATE CD [Suspect]
     Indication: ATTENTION DEFICIT/HYPERACTIVITY DISORDER
     Dosage: EXTENDED RELEASE
     Route: 048
     Dates: start: 20120101
  5. METADATE CD [Suspect]
     Indication: DEPRESSION
     Dosage: EXTENDED RELEASE
     Route: 048
     Dates: start: 20120101
  6. MIRTAZAPINE [Concomitant]
     Indication: DEPRESSION
     Route: 048
     Dates: start: 20080701
  7. LAMOTRIGINE [Concomitant]
     Indication: DEPRESSION
     Route: 048
     Dates: start: 20080701

REACTIONS (1)
  - GLAUCOMA [None]
